FAERS Safety Report 5048935-3 (Version None)
Quarter: 2006Q3

REPORT INFORMATION
  Report Type: 
  Country: None (occurrence: None)
  Receive Date: 20060712
  Receipt Date: 20050902
  Transmission Date: 20061208
  Serious: No
  Sender: FDA-Public Use
  Company Number: US-GLAXOSMITHKLINE-A0572888A

PATIENT
  Age: 61 Year
  Sex: Female
  Weight: 102.3 kg

DRUGS (8)
  1. IMITREX [Suspect]
     Indication: MIGRAINE
     Dosage: 100MG AS REQUIRED
     Route: 048
  2. CALAN [Concomitant]
     Indication: HYPERTENSION
     Dosage: 240MG PER DAY
     Route: 048
  3. K-DUR 10 [Concomitant]
     Dosage: 20MEQ ALTERNATE DAYS
     Route: 048
  4. LASIX [Concomitant]
     Dosage: 40MG ALTERNATE DAYS
     Route: 048
  5. PREMARIN [Concomitant]
     Indication: MENOPAUSE
     Dosage: .625MG PER DAY
     Route: 048
  6. CELEBREX [Concomitant]
     Indication: OSTEOARTHRITIS
     Dosage: 200MG PER DAY
     Route: 048
  7. ATENOLOL [Concomitant]
     Indication: HYPERTENSION
     Dosage: 12.5MG PER DAY
     Route: 048
  8. NEXIUM [Concomitant]
     Dosage: 40MG PER DAY
     Route: 048

REACTIONS (6)
  - HYPOAESTHESIA [None]
  - MUSCULAR WEAKNESS [None]
  - NAUSEA [None]
  - PARAESTHESIA [None]
  - SENSATION OF HEAVINESS [None]
  - VISION BLURRED [None]
